FAERS Safety Report 10031604 (Version 1)
Quarter: 2014Q1

REPORT INFORMATION
  Report Type: Spontaneous
  Country: US (occurrence: US)
  Receive Date: 20140324
  Receipt Date: 20140324
  Transmission Date: 20141002
  Serious: No
  Sender: FDA-Public Use
  Company Number: US-PFIZER INC-2014081864

PATIENT
  Sex: Female

DRUGS (2)
  1. CHANTIX [Suspect]
     Dosage: UNK
  2. MORPHINE SULFATE [Interacting]
     Dosage: UNK

REACTIONS (2)
  - Feeling abnormal [Unknown]
  - Drug interaction [Unknown]
